FAERS Safety Report 8283192-6 (Version None)
Quarter: 2012Q2

REPORT INFORMATION
  Report Type: 
  Country: None (occurrence: None)
  Receive Date: 20120413
  Receipt Date: 20120411
  Transmission Date: 20120825
  Serious: Yes (Hospitalization, Other)
  Sender: FDA-Public Use
  Company Number: US-MERCK-1201USA00986

PATIENT
  Age: 54 Year
  Sex: Female
  Weight: 67 kg

DRUGS (3)
  1. FOSAMAX [Suspect]
     Indication: OSTEOPOROSIS
     Route: 048
     Dates: start: 20030101, end: 20070101
  2. ACTONEL [Suspect]
     Indication: OSTEOPOROSIS
     Route: 065
     Dates: start: 20070101, end: 20100101
  3. RECLAST [Suspect]
     Indication: OSTEOPOROSIS
     Route: 041
     Dates: start: 20100910

REACTIONS (18)
  - CEREBROVASCULAR ACCIDENT [None]
  - HAEMATOCHEZIA [None]
  - BLOOD CHOLESTEROL INCREASED [None]
  - ANXIETY [None]
  - OSTEONECROSIS OF JAW [None]
  - TOOTH FRACTURE [None]
  - DEPRESSION [None]
  - OSTEONECROSIS [None]
  - STRESS [None]
  - HEART RATE IRREGULAR [None]
  - HYPERTENSION [None]
  - BASAL CELL CARCINOMA [None]
  - ABORTION SPONTANEOUS [None]
  - ANGIOPATHY [None]
  - FIBROCYSTIC BREAST DISEASE [None]
  - MYALGIA [None]
  - TOOTH LOSS [None]
  - PSEUDOEPITHELIOMATOUS HYPERPLASIA [None]
